FAERS Safety Report 20663253 (Version 1)
Quarter: 2022Q2

REPORT INFORMATION
  Report Type: Spontaneous
  Country: US (occurrence: US)
  Receive Date: 20220401
  Receipt Date: 20220401
  Transmission Date: 20220721
  Serious: No
  Sender: FDA-Public Use
  Company Number: US-TEVA-2022-US-2015366

PATIENT
  Age: 92 Year
  Sex: Female

DRUGS (2)
  1. LIDOCAINE [Suspect]
     Active Substance: LIDOCAINE
     Indication: Arthritis
     Dosage: ONE PATCH FOR 12 HOURS
     Route: 062
  2. LIDOCAINE [Suspect]
     Active Substance: LIDOCAINE
     Indication: Spondylitis

REACTIONS (3)
  - Sinusitis [Not Recovered/Not Resolved]
  - Headache [Not Recovered/Not Resolved]
  - Drug effective for unapproved indication [Unknown]
